FAERS Safety Report 15289713 (Version 13)
Quarter: 2024Q2

REPORT INFORMATION
  Report Type: Report from Study
  Country: AU (occurrence: AU)
  Receive Date: 20180817
  Receipt Date: 20240619
  Transmission Date: 20240715
  Serious: Yes (Hospitalization)
  Sender: FDA-Public Use
  Company Number: AU-SA-2016SA147483

PATIENT
  Age: 45 Year
  Sex: Male

DRUGS (28)
  1. ALEMTUZUMAB [Suspect]
     Active Substance: ALEMTUZUMAB
     Indication: Relapsing multiple sclerosis
     Dosage: 12 MG, QD
     Route: 041
     Dates: start: 20150629, end: 20150703
  2. ALEMTUZUMAB [Suspect]
     Active Substance: ALEMTUZUMAB
     Dosage: 12 MG,QD
     Route: 041
     Dates: start: 20160629, end: 20160701
  3. PREDNISOLONE [Concomitant]
     Active Substance: PREDNISOLONE
     Indication: Prophylaxis
     Dosage: 25 MG,QD
     Route: 048
     Dates: start: 20170127, end: 20170130
  4. PREDNISOLONE [Concomitant]
     Active Substance: PREDNISOLONE
     Dosage: 20 MG,QD
     Route: 048
     Dates: start: 20170131, end: 20170202
  5. PREDNISOLONE [Concomitant]
     Active Substance: PREDNISOLONE
     Dosage: 15 MG,QD
     Route: 048
     Dates: start: 20170203, end: 20170207
  6. PREDNISOLONE [Concomitant]
     Active Substance: PREDNISOLONE
     Dosage: 25 MG,QD
     Route: 048
     Dates: start: 20170705, end: 20170706
  7. PREDNISOLONE [Concomitant]
     Active Substance: PREDNISOLONE
     Dosage: 25 MG,QD
     Route: 048
     Dates: start: 20170712, end: 20170713
  8. PREDNISOLONE [Concomitant]
     Active Substance: PREDNISOLONE
     Dosage: 50 MG,QD
     Route: 048
     Dates: start: 20170714, end: 20170715
  9. PREDNISOLONE [Concomitant]
     Active Substance: PREDNISOLONE
     Dosage: 25 MG,QD
     Route: 048
     Dates: start: 20170716, end: 20170721
  10. PREDNISOLONE [Concomitant]
     Active Substance: PREDNISOLONE
     Dosage: 20 MG,UNK
     Route: 048
     Dates: start: 20170905, end: 20170917
  11. PREDNISOLONE [Concomitant]
     Active Substance: PREDNISOLONE
     Dosage: 15 MG,UNK
     Route: 048
     Dates: start: 20170918, end: 20171001
  12. PREDNISOLONE [Concomitant]
     Active Substance: PREDNISOLONE
     Dosage: 10 MG,UNK
     Route: 048
     Dates: start: 20171002, end: 20171015
  13. PREDNISOLONE [Concomitant]
     Active Substance: PREDNISOLONE
     Dosage: 5 MG,UNK
     Route: 048
     Dates: start: 20171016, end: 201801
  14. PREDNISOLONE [Concomitant]
     Active Substance: PREDNISOLONE
     Dosage: 25 MG, QD
     Route: 048
     Dates: start: 20170722
  15. CLONIDINE [Concomitant]
     Active Substance: CLONIDINE
     Indication: Multiple sclerosis
     Dosage: 100 UG
     Route: 048
     Dates: start: 20191108, end: 201911
  16. METHYLPREDNISOLONE [Concomitant]
     Active Substance: METHYLPREDNISOLONE
     Dosage: 1 G,QD
     Route: 042
     Dates: start: 20160629, end: 20160701
  17. DOCUSATE SODIUM\SENNOSIDES A AND B [Concomitant]
     Active Substance: DOCUSATE SODIUM\SENNOSIDES A AND B
     Indication: Prophylaxis
     Dosage: 2 DF,QD
     Route: 048
     Dates: start: 20170713, end: 20170713
  18. LORATADINE [Concomitant]
     Active Substance: LORATADINE
     Indication: Prophylaxis
     Dosage: 10 MG,QD
     Route: 048
     Dates: start: 20150628
  19. LORATADINE [Concomitant]
     Active Substance: LORATADINE
     Dosage: 10 MG,QD
     Route: 048
     Dates: start: 20160628, end: 20160712
  20. RANITIDINE [Concomitant]
     Active Substance: RANITIDINE
     Indication: Prophylaxis
     Dosage: 300 MG,QD
     Route: 048
     Dates: start: 20150628
  21. RANITIDINE [Concomitant]
     Active Substance: RANITIDINE
     Dosage: 300 MG,QD
     Route: 048
     Dates: start: 20160628, end: 20160712
  22. VALACYCLOVIR HYDROCHLORIDE [Concomitant]
     Active Substance: VALACYCLOVIR HYDROCHLORIDE
     Indication: Prophylaxis
     Dosage: 500 MG,QD
     Route: 048
     Dates: start: 20150628
  23. ACETAMINOPHEN [Concomitant]
     Active Substance: ACETAMINOPHEN
     Indication: Prophylaxis
     Dosage: 6 G,QD
     Route: 048
     Dates: start: 20150629
  24. ACETAMINOPHEN [Concomitant]
     Active Substance: ACETAMINOPHEN
     Indication: Headache
     Dosage: 1 G,QD
     Route: 048
     Dates: start: 20160629, end: 20160701
  25. ACETAMINOPHEN [Concomitant]
     Active Substance: ACETAMINOPHEN
     Dosage: 1 UNK
     Route: 048
     Dates: start: 20170123, end: 20170201
  26. ERGOCALCIFEROL [Concomitant]
     Active Substance: ERGOCALCIFEROL
     Indication: Prophylaxis
     Dosage: 1 DF,QD
     Route: 048
     Dates: start: 201502
  27. TEMAZEPAM [Concomitant]
     Active Substance: TEMAZEPAM
     Indication: Prophylaxis
     Dosage: 10 MG,QD
     Route: 048
     Dates: start: 20160629, end: 20160711
  28. NATALIZUMAB [Concomitant]
     Active Substance: NATALIZUMAB
     Dosage: UNK
     Route: 065
     Dates: end: 201607

REACTIONS (20)
  - Purpura [Recovered/Resolved]
  - Anaphylactic reaction [Recovered/Resolved]
  - Graves^ disease [Not Recovered/Not Resolved]
  - Hyperthyroidism [Recovered/Resolved]
  - Thyroiditis [Recovered/Resolved]
  - Angioedema [Recovered/Resolved]
  - Tachycardia [Recovered/Resolved]
  - Flushing [Recovered/Resolved]
  - Haematuria [Recovered/Resolved]
  - Cutaneous vasculitis [Recovered/Resolved]
  - Urticaria [Recovered/Resolved]
  - Fall [Not Recovered/Not Resolved]
  - Muscle spasticity [Not Recovered/Not Resolved]
  - Muscle spasticity [Not Recovered/Not Resolved]
  - Dysphagia [Recovered/Resolved]
  - Muscle spasticity [Recovered/Resolved]
  - Weight increased [Recovered/Resolved]
  - Oropharyngeal pain [Recovered/Resolved]
  - Headache [Recovered/Resolved]
  - Fatigue [Not Recovered/Not Resolved]

NARRATIVE: CASE EVENT DATE: 20160629
